FAERS Safety Report 7846210-2 (Version None)
Quarter: 2011Q4

REPORT INFORMATION
  Report Type: 
  Country: None (occurrence: None)
  Receive Date: 20111025
  Receipt Date: 20111018
  Transmission Date: 20120403
  Serious: Yes (Death, Hospitalization, Other)
  Sender: FDA-Public Use
  Company Number: US-ROCHE-767160

PATIENT
  Sex: Female

DRUGS (10)
  1. METOPROLOL TARTRATE [Concomitant]
     Route: 048
  2. ZOFRAN [Concomitant]
  3. LISINOPRIL [Concomitant]
     Route: 048
  4. CARAFATE [Concomitant]
  5. CRESTOR [Concomitant]
  6. AVASTIN [Suspect]
     Indication: BREAST CANCER
     Route: 065
  7. ZYPREXA [Concomitant]
     Indication: ANXIETY
  8. ZINC [Concomitant]
  9. ASPIRIN [Concomitant]
  10. NAPROXEN [Concomitant]
     Route: 048

REACTIONS (2)
  - CARDIAC FAILURE CONGESTIVE [None]
  - EMOTIONAL DISTRESS [None]
